FAERS Safety Report 25034474 (Version 2)
Quarter: 2025Q1

REPORT INFORMATION
  Report Type: Spontaneous
  Country: US (occurrence: US)
  Receive Date: 20250304
  Receipt Date: 20250317
  Transmission Date: 20250408
  Serious: No
  Sender: ROCHE
  Company Number: US-ROCHE-10000217094

PATIENT
  Age: 65 Year
  Sex: Female
  Weight: 61.23 kg

DRUGS (8)
  1. PERJETA [Suspect]
     Active Substance: PERTUZUMAB
     Indication: Breast cancer
     Route: 042
     Dates: start: 20240906, end: 20241227
  2. PHESGO [Suspect]
     Active Substance: HYALURONIDASE-ZZXF\PERTUZUMAB\TRASTUZUMAB
     Indication: Breast cancer
     Dosage: MORE DOSAGE INFO: PERTUZUMAB 600 MG, TRASTUZUMAB 600 MG, AND HYALURONIDASE 20,000 UNITS
     Route: 058
  3. HERCEPTIN [Suspect]
     Active Substance: TRASTUZUMAB
     Indication: Breast cancer
     Route: 042
     Dates: start: 20240906, end: 20241227
  4. OGIVRI [Suspect]
     Active Substance: TRASTUZUMAB-DKST
     Indication: HER2 positive breast cancer
     Route: 042
  5. DOCETAXEL [Concomitant]
     Active Substance: DOCETAXEL
     Dates: start: 20240906, end: 20241227
  6. CARBOPLATIN [Concomitant]
     Active Substance: CARBOPLATIN
     Dates: start: 20240906, end: 20241227
  7. ALOXI [Concomitant]
     Active Substance: PALONOSETRON HYDROCHLORIDE
     Dates: start: 20240906, end: 20241227
  8. EMEND [Concomitant]
     Active Substance: APREPITANT
     Dates: start: 20240906, end: 20241227

REACTIONS (3)
  - Incorrect dose administered [Unknown]
  - Lobular breast carcinoma in situ [Unknown]
  - Breast conserving surgery [Unknown]

NARRATIVE: CASE EVENT DATE: 20250128
